FAERS Safety Report 25596865 (Version 4)
Quarter: 2025Q4

REPORT INFORMATION
  Report Type: Spontaneous
  Country: JP (occurrence: JP)
  Receive Date: 20250723
  Receipt Date: 20251013
  Transmission Date: 20260117
  Serious: Yes (Death, Other)
  Sender: SANOFI AVENTIS
  Company Number: JP-MEIJISEIKA-202504200_P_1

PATIENT
  Age: 48 Year
  Sex: Male

DRUGS (2)
  1. REZUROCK [Suspect]
     Active Substance: BELUMOSUDIL
     Indication: Chronic graft versus host disease
     Dosage: 200 MG, QD
     Route: 048
     Dates: start: 20250625, end: 20250630
  2. TACROLIMUS [Concomitant]
     Active Substance: TACROLIMUS
     Dosage: UNK
     Route: 065

REACTIONS (3)
  - Venoocclusive liver disease [Fatal]
  - Blood bilirubin increased [Not Recovered/Not Resolved]
  - Generalised oedema [Not Recovered/Not Resolved]
